FAERS Safety Report 5203761-7 (Version None)
Quarter: 2007Q1

REPORT INFORMATION
  Report Type: 
  Country: None (occurrence: None)
  Receive Date: 20070109
  Receipt Date: 20070109
  Transmission Date: 20070707
  Serious: Yes (Death)
  Sender: FDA-Public Use
  Company Number: None

PATIENT
  Age: 89 Year
  Sex: Male

DRUGS (2)
  1. TORADOL [Suspect]
     Dosage: 15 MG Q6H IV
     Route: 042
  2. CAPTOPRIL [Suspect]
     Dosage: 50 MG QID PO
     Route: 048

REACTIONS (6)
  - BLOOD CREATINE INCREASED [None]
  - CARDIAC FAILURE CONGESTIVE [None]
  - FALL [None]
  - HIP FRACTURE [None]
  - REFUSAL OF TREATMENT BY PATIENT [None]
  - RESPIRATORY FAILURE [None]
